FAERS Safety Report 18393584 (Version 4)
Quarter: 2021Q2

REPORT INFORMATION
  Report Type: Spontaneous
  Country: US (occurrence: US)
  Receive Date: 20201016
  Receipt Date: 20210402
  Transmission Date: 20210717
  Serious: No
  Sender: FDA-Public Use
  Company Number: US-ASTRAZENECA-2020SF32844

PATIENT
  Age: 52 Year
  Sex: Female

DRUGS (1)
  1. LYNPARZA [Suspect]
     Active Substance: OLAPARIB
     Indication: OVARIAN CANCER
     Dosage: 2 TABLETS OF 200 MILLIGRAM DAILY
     Route: 048
     Dates: start: 201804

REACTIONS (11)
  - Dysgeusia [Unknown]
  - Hernia [Unknown]
  - Restless legs syndrome [Unknown]
  - Bone pain [Unknown]
  - Surgery [Unknown]
  - Fatigue [Unknown]
  - Arthralgia [Unknown]
  - Somnolence [Unknown]
  - Renal disorder [Unknown]
  - Blood creatinine increased [Recovering/Resolving]
  - Hair growth abnormal [Unknown]

NARRATIVE: CASE EVENT DATE: 2018
